FAERS Safety Report 7764827-0 (Version None)
Quarter: 2011Q3

REPORT INFORMATION
  Report Type: 
  Country: None (occurrence: None)
  Receive Date: 20110921
  Receipt Date: 20110915
  Transmission Date: 20111222
  Serious: Yes (Other)
  Sender: FDA-Public Use
  Company Number: JP-PFIZER INC-2011187320

PATIENT
  Age: 44 Year
  Sex: Male

DRUGS (4)
  1. PREDNISOLONE [Concomitant]
     Dosage: 10 MG, UNK
     Route: 048
     Dates: start: 20070101
  2. MUCOSTA [Concomitant]
     Dosage: 200 MG, UNK
     Route: 048
     Dates: start: 20091101
  3. AZULFIDINE [Suspect]
     Dosage: 1000MG/DAY
     Route: 048
     Dates: start: 20091101, end: 20110810
  4. ALLOPURINOL [Suspect]
     Dosage: 100MG/DAY
     Route: 048
     Dates: start: 20091101, end: 20110810

REACTIONS (3)
  - SURGERY [None]
  - MUSCULOSKELETAL PAIN [None]
  - NEPHROTIC SYNDROME [None]
